FAERS Safety Report 5788292-8 (Version None)
Quarter: 2008Q2

REPORT INFORMATION
  Report Type: 
  Country: None (occurrence: None)
  Receive Date: 20080625
  Receipt Date: 20080618
  Transmission Date: 20081010
  Serious: Yes (Death, Hospitalization)
  Sender: FDA-Public Use
  Company Number: US-MERCK-0806USA08193

PATIENT
  Age: 75 Year
  Sex: Male

DRUGS (1)
  1. CLINORIL [Suspect]
     Route: 065

REACTIONS (1)
  - CHOLESTATIC LIVER INJURY [None]
